FAERS Safety Report 8465410-4 (Version None)
Quarter: 2012Q2

REPORT INFORMATION
  Report Type: 
  Country: None (occurrence: None)
  Receive Date: 20120626
  Receipt Date: 20120618
  Transmission Date: 20120825
  Serious: Yes (Hospitalization)
  Sender: FDA-Public Use
  Company Number: US-BAYER-2012-062012

PATIENT
  Age: 26 Year
  Sex: Female
  Weight: 97 kg

DRUGS (9)
  1. YAZ [Suspect]
     Indication: POLYCYSTIC OVARIES
  2. CHERATUSSIN AC [Concomitant]
     Dosage: UNK
     Dates: start: 20110127
  3. OXYCODONE HCL [Concomitant]
  4. METFORMIN HCL [Concomitant]
     Indication: POLYCYSTIC OVARIES
     Dosage: 500 MG, BID
     Route: 048
     Dates: start: 20110224
  5. YASMIN [Suspect]
     Indication: MENSTRUATION IRREGULAR
  6. YASMIN [Suspect]
     Indication: POLYCYSTIC OVARIES
  7. KLONOPIN [Concomitant]
     Indication: ANXIETY
     Dosage: UNK
     Route: 048
     Dates: start: 20110316
  8. PHENERGAN [Concomitant]
  9. HYDROCODONE BITARTRATE AND ACETAMINOPHEN [Concomitant]
     Dosage: UNK
     Dates: start: 20101203

REACTIONS (1)
  - PULMONARY EMBOLISM [None]
